FAERS Safety Report 5423551-X (Version None)
Quarter: 2007Q3

REPORT INFORMATION
  Report Type: 
  Country: None (occurrence: None)
  Receive Date: 20070823
  Receipt Date: 20060518
  Transmission Date: 20080115
  Serious: No
  Sender: FDA-Public Use
  Company Number: US-ASTRAZENECA-2006UW06579

PATIENT
  Age: 56 Year
  Sex: Female

DRUGS (2)
  1. IRESSA [Suspect]
     Indication: BRONCHIOLOALVEOLAR CARCINOMA
     Route: 048
     Dates: start: 20040301
  2. IRESSA [Suspect]
     Route: 048

REACTIONS (3)
  - DIARRHOEA [None]
  - FOLLICULITIS [None]
  - RASH GENERALISED [None]
